FAERS Safety Report 15427923 (Version 1)
Quarter: 2018Q3

REPORT INFORMATION
  Report Type: Spontaneous
  Country: US (occurrence: US)
  Receive Date: 20180926
  Receipt Date: 20180926
  Transmission Date: 20181010
  Serious: No
  Sender: FDA-Public Use
  Company Number: US-009507513-1809USA010703

PATIENT
  Sex: Female

DRUGS (1)
  1. REMERON [Suspect]
     Active Substance: MIRTAZAPINE
     Indication: DEPRESSED MOOD
     Dosage: UNK
     Dates: start: 2018

REACTIONS (2)
  - Intentional product use issue [Unknown]
  - Sluggishness [Unknown]

NARRATIVE: CASE EVENT DATE: 2018
